FAERS Safety Report 9394185 (Version 5)
Quarter: 2014Q2

REPORT INFORMATION
  Report Type: Report from Study
  Country: CA (occurrence: CA)
  Receive Date: 20130711
  Receipt Date: 20140421
  Transmission Date: 20141212
  Serious: Yes (Hospitalization, Other)
  Sender: FDA-Public Use
  Company Number: CA-ROCHE-1124005

PATIENT
  Age: 62 Year
  Sex: Male
  Weight: 66.65 kg

DRUGS (8)
  1. ACTEMRA [Suspect]
     Indication: RHEUMATOID ARTHRITIS
     Route: 042
     Dates: start: 20111025
  2. ACTEMRA [Suspect]
     Route: 042
     Dates: start: 20120215
  3. ACTEMRA [Suspect]
     Route: 042
     Dates: start: 20121128
  4. PREDNISONE [Concomitant]
  5. FOLIC ACID [Concomitant]
     Route: 065
  6. RANITIDINE [Concomitant]
  7. VENTOLINE [Concomitant]
     Indication: EMPHYSEMA
  8. FLOVENT [Concomitant]
     Indication: EMPHYSEMA

REACTIONS (8)
  - Pneumonia [Recovered/Resolved]
  - Bone loss [Unknown]
  - Limb injury [Unknown]
  - Hypertension [Not Recovered/Not Resolved]
  - Fall [Unknown]
  - Musculoskeletal stiffness [Unknown]
  - Influenza [Unknown]
  - Lower respiratory tract infection [Not Recovered/Not Resolved]
